FAERS Safety Report 17668714 (Version 1)
Quarter: 2020Q2

REPORT INFORMATION
  Report Type: Spontaneous
  Country: FR (occurrence: FR)
  Receive Date: 20200415
  Receipt Date: 20200415
  Transmission Date: 20200713
  Serious: Yes (Hospitalization, Other)
  Sender: FDA-Public Use
  Company Number: FR-AUROBINDO-AUR-APL-2020-017690

PATIENT
  Age: 37 Year
  Sex: Male

DRUGS (7)
  1. TERALITHE [Suspect]
     Active Substance: LITHIUM CARBONATE
     Indication: SCHIZOAFFECTIVE DISORDER
     Dosage: 2.5 DOSAGE FORM, ONCE A DAY
     Route: 048
     Dates: end: 20200314
  2. OLANZAPINE. [Suspect]
     Active Substance: OLANZAPINE
     Indication: SCHIZOAFFECTIVE DISORDER
     Dosage: 5MG/JOUR PUIS AUGMENTATION ? 10MG/JR
     Route: 048
     Dates: start: 20200224, end: 20200314
  3. PROZAC [Suspect]
     Active Substance: FLUOXETINE HYDROCHLORIDE
     Indication: SCHIZOAFFECTIVE DISORDER
     Dosage: 3 DOSAGE FORM, ONCE A DAY
     Route: 048
     Dates: end: 20200305
  4. LAMICTAL [Concomitant]
     Active Substance: LAMOTRIGINE
     Indication: SCHIZOAFFECTIVE DISORDER
     Dosage: 1 DOSAGE FORM, ONCE A DAY
     Route: 048
     Dates: start: 20200223, end: 20200314
  5. ANAFRANIL [Suspect]
     Active Substance: CLOMIPRAMINE HYDROCHLORIDE
     Indication: SCHIZOAFFECTIVE DISORDER
     Dosage: 1 DOSAGE FORM, ONCE A DAY
     Route: 048
     Dates: start: 20200305, end: 20200314
  6. VALIUM [Concomitant]
     Active Substance: DIAZEPAM
     Indication: SCHIZOAFFECTIVE DISORDER
     Dosage: INCONNUE
     Route: 048
     Dates: start: 20200225, end: 20200314
  7. ABILIFY [Suspect]
     Active Substance: ARIPIPRAZOLE
     Indication: SCHIZOAFFECTIVE DISORDER
     Dosage: 20MG 2 FOIS PAR JOUR, PUIS DIMINU? ? 15MG 2 FOIS PAR JOUR
     Route: 048
     Dates: end: 20200314

REACTIONS (1)
  - Neuroleptic malignant syndrome [Recovered/Resolved]

NARRATIVE: CASE EVENT DATE: 20200313
